FAERS Safety Report 7707381-1 (Version None)
Quarter: 2011Q3

REPORT INFORMATION
  Report Type: 
  Country: None (occurrence: None)
  Receive Date: 20110824
  Receipt Date: 20110815
  Transmission Date: 20111222
  Serious: Yes (Other)
  Sender: FDA-Public Use
  Company Number: US-ELI_LILLY_AND_COMPANY-US201108005566

PATIENT
  Age: 74 Year
  Sex: Male

DRUGS (1)
  1. CYMBALTA [Suspect]
     Indication: DEPRESSION
     Dosage: 90 MG, QD
     Dates: start: 20090101

REACTIONS (10)
  - VISION BLURRED [None]
  - VIITH NERVE PARALYSIS [None]
  - HYPERSENSITIVITY [None]
  - PAIN IN EXTREMITY [None]
  - FEELING ABNORMAL [None]
  - PARAESTHESIA ORAL [None]
  - DIZZINESS [None]
  - PARAESTHESIA [None]
  - HYPOAESTHESIA [None]
  - GAIT DISTURBANCE [None]
